FAERS Safety Report 25769587 (Version 1)
Quarter: 2025Q3

REPORT INFORMATION
  Report Type: Spontaneous
  Country: IL (occurrence: IL)
  Receive Date: 20250906
  Receipt Date: 20250906
  Transmission Date: 20251020
  Serious: Yes (Death)
  Sender: AMGEN
  Company Number: IL-AMGEN-ISRSP2025171475

PATIENT

DRUGS (1)
  1. PROLIA [Suspect]
     Active Substance: DENOSUMAB
     Indication: Osteoporotic fracture
     Route: 058

REACTIONS (2)
  - Death [Fatal]
  - Fracture [Unknown]
